FAERS Safety Report 11790988 (Version 1)
Quarter: 2015Q4

REPORT INFORMATION
  Report Type: Spontaneous
  Country: US (occurrence: US)
  Receive Date: 20151201
  Receipt Date: 20151201
  Transmission Date: 20160305
  Serious: Yes (Other)
  Sender: FDA-Public Use
  Company Number: US-TEVA-612914USA

PATIENT
  Sex: Female

DRUGS (1)
  1. COPAXONE [Suspect]
     Active Substance: GLATIRAMER ACETATE
     Indication: MULTIPLE SCLEROSIS
     Dosage: UNKNOWN FORM STRENGTH

REACTIONS (10)
  - Dizziness [Unknown]
  - Paraesthesia [Unknown]
  - Chills [Unknown]
  - Diabetes mellitus [Unknown]
  - Dyspnoea [Unknown]
  - Nausea [Unknown]
  - Injection site pruritus [Unknown]
  - Uterine cancer [Unknown]
  - Colitis ulcerative [Unknown]
  - Flushing [Unknown]
